FAERS Safety Report 10418321 (Version 1)
Quarter: 2014Q3

REPORT INFORMATION
  Report Type: Spontaneous
  Country: US (occurrence: None)
  Receive Date: 20140828
  Receipt Date: 20140828
  Transmission Date: 20150326
  Serious: Yes (Hospitalization)
  Sender: FDA-Public Use
  Company Number: None

PATIENT
  Age: 70 Year
  Sex: Male
  Weight: 62 kg

DRUGS (4)
  1. ERBITUX [Suspect]
     Active Substance: CETUXIMAB
     Dosage: IV ONE HOUR?
  2. CARBOPLATIN. [Suspect]
     Active Substance: CARBOPLATIN
     Dosage: IV OVER 30 MINS?
  3. TAXOL [Suspect]
     Active Substance: PACLITAXEL
     Dosage: IV OVER THREE HOURS?
  4. LOVENOX [Concomitant]
     Active Substance: ENOXAPARIN SODIUM

REACTIONS (8)
  - Electrolyte imbalance [None]
  - Cardiac tamponade [None]
  - Pancytopenia [None]
  - Atrial fibrillation [None]
  - Blood culture positive [None]
  - Hypotension [None]
  - Pseudomonal sepsis [None]
  - Pneumonia [None]

NARRATIVE: CASE EVENT DATE: 20131209
